FAERS Safety Report 8427811-X (Version None)
Quarter: 2012Q2

REPORT INFORMATION
  Report Type: 
  Country: None (occurrence: None)
  Receive Date: 20120611
  Receipt Date: 20120530
  Transmission Date: 20120825
  Serious: Yes (Other)
  Sender: FDA-Public Use
  Company Number: GB-PFIZER INC-2012129515

PATIENT
  Age: 21 Year
  Sex: Male
  Weight: 80 kg

DRUGS (2)
  1. SERTRALINE HYDROCHLORIDE [Suspect]
     Indication: ANXIETY
     Dosage: 50/100MG
     Route: 048
     Dates: start: 20030408, end: 20080414
  2. CITALOPRAM [Suspect]
     Indication: ANXIETY
     Dosage: 10/20MG
     Route: 048
     Dates: start: 20110815, end: 20120314

REACTIONS (2)
  - ERECTILE DYSFUNCTION [None]
  - SEXUAL DYSFUNCTION [None]
